FAERS Safety Report 11105139 (Version 1)
Quarter: 2015Q2

REPORT INFORMATION
  Report Type: Spontaneous
  Country: US (occurrence: US)
  Receive Date: 20150511
  Receipt Date: 20150511
  Transmission Date: 20150821
  Serious: No
  Sender: FDA-Public Use
  Company Number: US-GLAXOSMITHKLINE-US2015062570

PATIENT
  Age: 32 Year
  Sex: Female

DRUGS (5)
  1. MELATONIN [Concomitant]
     Active Substance: MELATONIN
  2. LORAZEPAM. [Concomitant]
     Active Substance: LORAZEPAM
  3. LAMICTAL [Suspect]
     Active Substance: LAMOTRIGINE
     Indication: BIPOLAR DISORDER
     Dosage: 25 MG, PRN
     Route: 048
     Dates: start: 20150506
  4. TEMAZEPAM. [Concomitant]
     Active Substance: TEMAZEPAM
  5. QUETIAPINE [Concomitant]
     Active Substance: QUETIAPINE

REACTIONS (1)
  - Pain [Unknown]

NARRATIVE: CASE EVENT DATE: 201505
